FAERS Safety Report 24224811 (Version 1)
Quarter: 2024Q3

REPORT INFORMATION
  Report Type: Spontaneous
  Country: US (occurrence: US)
  Receive Date: 20240819
  Receipt Date: 20240819
  Transmission Date: 20241017
  Serious: Yes (Hospitalization, Other)
  Sender: BRISTOL MYERS SQUIBB
  Company Number: US-BRISTOL-MYERS SQUIBB COMPANY-2024-128654

PATIENT
  Age: 82 Year
  Sex: Female

DRUGS (3)
  1. ELIQUIS [Suspect]
     Active Substance: APIXABAN
     Indication: Product used for unknown indication
  2. OFEV [Suspect]
     Active Substance: NINTEDANIB
     Indication: Idiopathic pulmonary fibrosis
     Route: 048
     Dates: start: 20240402
  3. OFEV [Suspect]
     Active Substance: NINTEDANIB
     Indication: Interstitial lung disease
     Route: 048
     Dates: start: 202405

REACTIONS (12)
  - COVID-19 [Not Recovered/Not Resolved]
  - Sepsis [Unknown]
  - Dehydration [Unknown]
  - Visual impairment [Not Recovered/Not Resolved]
  - Diarrhoea [Not Recovered/Not Resolved]
  - Localised infection [Unknown]
  - Peripheral swelling [Unknown]
  - Haemoglobin decreased [Not Recovered/Not Resolved]
  - Asthenia [Unknown]
  - Dyspnoea [Not Recovered/Not Resolved]
  - Haematocrit decreased [Not Recovered/Not Resolved]
  - Bone marrow disorder [Unknown]

NARRATIVE: CASE EVENT DATE: 20240101
